FAERS Safety Report 23868369 (Version 1)
Quarter: 2024Q2

REPORT INFORMATION
  Report Type: Spontaneous
  Country: US (occurrence: US)
  Receive Date: 20240517
  Receipt Date: 20240517
  Transmission Date: 20240716
  Serious: Yes (Other)
  Sender: FDA-Public Use
  Company Number: US-ORGANON-O2405USA000755

PATIENT
  Sex: Female

DRUGS (1)
  1. NEXPLANON [Suspect]
     Active Substance: ETONOGESTREL
     Dosage: 1 IMPLANT
     Route: 059

REACTIONS (3)
  - Heavy menstrual bleeding [Recovered/Resolved]
  - Breast discharge [Not Recovered/Not Resolved]
  - Axillary pain [Not Recovered/Not Resolved]

NARRATIVE: CASE EVENT DATE: 20240401
